FAERS Safety Report 9162708 (Version 1)
Quarter: 2013Q1

REPORT INFORMATION
  Report Type: Spontaneous
  Country: DE (occurrence: None)
  Receive Date: 20130312
  Receipt Date: 20130312
  Transmission Date: 20140127
  Serious: Yes (Death, Other)
  Sender: FDA-Public Use
  Company Number: GER/GER/13/0028445

PATIENT
  Age: 87 Year
  Sex: Female
  Weight: 60 kg

DRUGS (1)
  1. METFORMIN (METFORMIN) [Suspect]
     Indication: TYPE 2 DIABETES MELLITUS
     Route: 048
     Dates: end: 20121025

REACTIONS (3)
  - Gastroenteritis [None]
  - Lactic acidosis [None]
  - Haemodialysis [None]
